FAERS Safety Report 7724333-6 (Version None)
Quarter: 2011Q3

REPORT INFORMATION
  Report Type: 
  Country: None (occurrence: None)
  Receive Date: 20110901
  Receipt Date: 20110823
  Transmission Date: 20111222
  Serious: Yes (Other)
  Sender: FDA-Public Use
  Company Number: US-ASTRAZENECA-2011SE46779

PATIENT
  Age: 40 Year
  Sex: Male
  Weight: 90.7 kg

DRUGS (8)
  1. DIZAN [Concomitant]
  2. SEROQUEL [Suspect]
     Indication: SCHIZOPHRENIA
     Route: 048
     Dates: start: 20080101
  3. TRAZODONE HCL [Concomitant]
  4. PROZAC [Concomitant]
     Dosage: 40 MG EVERY MORNING
  5. ATACAND [Concomitant]
     Route: 048
  6. METFORMIN [Concomitant]
  7. ATIVAN [Concomitant]
  8. ZANTAC [Concomitant]

REACTIONS (6)
  - HYPERTENSION [None]
  - HALLUCINATION, AUDITORY [None]
  - INSOMNIA [None]
  - DIABETES MELLITUS [None]
  - MEMORY IMPAIRMENT [None]
  - INFECTED BITES [None]
